FAERS Safety Report 24353880 (Version 7)
Quarter: 2024Q4

REPORT INFORMATION
  Report Type: Spontaneous
  Country: US (occurrence: US)
  Receive Date: 20240923
  Receipt Date: 20241022
  Transmission Date: 20250114
  Serious: No
  Sender: ROCHE
  Company Number: US-ROCHE-10000087745

PATIENT
  Sex: Female
  Weight: 58.97 kg

DRUGS (4)
  1. ACTEMRA [Suspect]
     Active Substance: TOCILIZUMAB
     Indication: Giant cell arteritis
     Dosage: SUBSEQUENT DOSAGE RECEIEVED ON AUG-2024
     Route: 058
     Dates: start: 20240711
  2. ACTEMRA [Suspect]
     Active Substance: TOCILIZUMAB
     Indication: Blindness
  3. PREDNISONE [Concomitant]
     Active Substance: PREDNISONE
     Indication: Giant cell arteritis
     Route: 048
     Dates: start: 2024
  4. PREDNISONE [Concomitant]
     Active Substance: PREDNISONE
     Route: 042
     Dates: start: 20240713

REACTIONS (5)
  - Device mechanical issue [Unknown]
  - Device issue [Unknown]
  - Device malfunction [Unknown]
  - Malaise [Not Recovered/Not Resolved]
  - Fatigue [Not Recovered/Not Resolved]
